FAERS Safety Report 9839747 (Version 2)
Quarter: 2014Q1

REPORT INFORMATION
  Report Type: Spontaneous
  Country: US (occurrence: US)
  Receive Date: 20140124
  Receipt Date: 20140214
  Transmission Date: 20141002
  Serious: Yes (Other)
  Sender: FDA-Public Use
  Company Number: US-DRREDDYS-USA/USA/14/0037348

PATIENT
  Age: 22 Year
  Sex: Female

DRUGS (2)
  1. ZENATANE [Suspect]
     Indication: PRODUCT USED FOR UNKNOWN INDICATION
     Dosage: AVERAGE DAILY DOSE 100 MG
     Route: 065
     Dates: start: 20130709, end: 20131212
  2. ZENATANE [Suspect]
     Route: 065
     Dates: start: 20130910, end: 20131212

REACTIONS (2)
  - Abortion induced [Unknown]
  - Exposure during pregnancy [Unknown]
